FAERS Safety Report 5171339-X (Version None)
Quarter: 2006Q4

REPORT INFORMATION
  Report Type: 
  Country: None (occurrence: None)
  Receive Date: 20061213
  Receipt Date: 20060303
  Transmission Date: 20070319
  Serious: Yes (Hospitalization)
  Sender: FDA-Public Use
  Company Number: US-AMGEN-STX171135

PATIENT
  Sex: Male

DRUGS (8)
  1. ENBREL [Suspect]
     Indication: PSORIASIS
     Dates: start: 20060109, end: 20060301
  2. METHOTREXATE [Concomitant]
  3. LAMICTAL [Concomitant]
  4. LEXAPRO [Concomitant]
  5. DICLOXACILLIN [Concomitant]
  6. DOXAZOSIN MESYLATE [Concomitant]
  7. FOLIC ACID [Concomitant]
  8. UNSPECIFIED MEDICATION [Concomitant]

REACTIONS (1)
  - HAEMORRHAGIC STROKE [None]
